FAERS Safety Report 7206611-2 (Version None)
Quarter: 2011Q1

REPORT INFORMATION
  Report Type: 
  Country: None (occurrence: None)
  Receive Date: 20110103
  Receipt Date: 20101230
  Transmission Date: 20110831
  Serious: Yes (Hospitalization)
  Sender: FDA-Public Use
  Company Number: US-JNJFOC-20101104469

PATIENT
  Sex: Male
  Weight: 105.69 kg

DRUGS (6)
  1. TERAZOSIN HCL [Concomitant]
     Indication: ATONIC URINARY BLADDER
     Dosage: AT BED TIME
     Route: 048
  2. HYDROCHLOROTHIAZIDE [Concomitant]
     Indication: BLOOD PRESSURE
     Dosage: 80 MG/12.5 MG
     Route: 048
  3. FENTANYL-100 [Suspect]
     Indication: BACK PAIN
     Route: 062
  4. ZYLOPRIM [Concomitant]
     Indication: GOUT
     Route: 048
  5. METOPROLOL [Concomitant]
     Indication: BLOOD PRESSURE
     Dosage: IN EVENING
     Route: 048
  6. SIMVASTATIN [Concomitant]
     Indication: BLOOD CHOLESTEROL ABNORMAL
     Route: 048

REACTIONS (6)
  - PRODUCT QUALITY ISSUE [None]
  - HOSPITALISATION [None]
  - PAIN [None]
  - PRODUCT ADHESION ISSUE [None]
  - PRODUCT OUTER PACKAGING ISSUE [None]
  - DRUG INEFFECTIVE [None]
